FAERS Safety Report 17699175 (Version 5)
Quarter: 2021Q3

REPORT INFORMATION
  Report Type: Spontaneous
  Country: CA (occurrence: CA)
  Receive Date: 20200423
  Receipt Date: 20210908
  Transmission Date: 20211014
  Serious: Yes (Other)
  Sender: FDA-Public Use
  Company Number: CA-ROCHE-2585119

PATIENT
  Age: 53 Year
  Sex: Female

DRUGS (23)
  1. MYCOPHENOLATE MOFETIL. [Suspect]
     Active Substance: MYCOPHENOLATE MOFETIL
     Indication: PRODUCT USED FOR UNKNOWN INDICATION
     Route: 065
  2. AMOXICILLIN SODIUM AND CLAVULANATE POTASSIUM [Suspect]
     Active Substance: AMOXICILLIN\CLAVULANATE POTASSIUM
     Indication: PRODUCT USED FOR UNKNOWN INDICATION
     Route: 065
  3. ORENCIA [Suspect]
     Active Substance: ABATACEPT
     Indication: PRODUCT USED FOR UNKNOWN INDICATION
     Route: 065
  4. PLAQUENIL [Concomitant]
     Active Substance: HYDROXYCHLOROQUINE SULFATE
     Indication: RHEUMATOID ARTHRITIS
  5. REMICADE [Suspect]
     Active Substance: INFLIXIMAB
     Indication: PRODUCT USED FOR UNKNOWN INDICATION
     Route: 042
  6. AMOXICILLIN TRIHYDRATE;CLAVULANATE POTASSIUM [Suspect]
     Active Substance: AMOXICILLIN\CLAVULANATE POTASSIUM
     Indication: PRODUCT USED FOR UNKNOWN INDICATION
     Route: 065
  7. TYLENOL [Concomitant]
     Active Substance: ACETAMINOPHEN
     Indication: PRODUCT USED FOR UNKNOWN INDICATION
     Route: 065
  8. CIPROFLOXACIN. [Suspect]
     Active Substance: CIPROFLOXACIN
     Indication: PRODUCT USED FOR UNKNOWN INDICATION
     Route: 065
  9. ENBREL [Suspect]
     Active Substance: ETANERCEPT
     Indication: RHEUMATOID ARTHRITIS
     Route: 065
  10. CIPROFLOXACIN HYDROCHLORIDE. [Suspect]
     Active Substance: CIPROFLOXACIN HYDROCHLORIDE
     Indication: PRODUCT USED FOR UNKNOWN INDICATION
     Route: 065
  11. CIMETIDINE [Concomitant]
     Active Substance: CIMETIDINE
     Indication: PRODUCT USED FOR UNKNOWN INDICATION
     Route: 065
  12. RITUXIMAB. [Suspect]
     Active Substance: RITUXIMAB
     Indication: PRODUCT USED FOR UNKNOWN INDICATION
     Route: 065
  13. HYDROXYCHLOROQUINE SULFATE. [Suspect]
     Active Substance: HYDROXYCHLOROQUINE SULFATE
     Indication: PRODUCT USED FOR UNKNOWN INDICATION
     Route: 065
  14. SULFASALAZINE. [Suspect]
     Active Substance: SULFASALAZINE
     Indication: PRODUCT USED FOR UNKNOWN INDICATION
     Route: 065
  15. PREDNISONE. [Concomitant]
     Active Substance: PREDNISONE
     Indication: PRODUCT USED FOR UNKNOWN INDICATION
     Route: 065
  16. METHOTREXATE. [Suspect]
     Active Substance: METHOTREXATE
     Indication: PRODUCT USED FOR UNKNOWN INDICATION
     Route: 065
  17. HYDROXYCHLOROQUINE [Suspect]
     Active Substance: HYDROXYCHLOROQUINE
     Indication: PRODUCT USED FOR UNKNOWN INDICATION
     Route: 065
  18. HYDROXYCHLOROQUINE SULFATE. [Suspect]
     Active Substance: HYDROXYCHLOROQUINE SULFATE
     Route: 065
  19. TRIDURAL [Concomitant]
     Active Substance: TRAMADOL HYDROCHLORIDE
     Indication: PRODUCT USED FOR UNKNOWN INDICATION
     Route: 065
  20. AZATHIOPRINE. [Suspect]
     Active Substance: AZATHIOPRINE
     Indication: PRODUCT USED FOR UNKNOWN INDICATION
     Route: 065
  21. HUMIRA [Suspect]
     Active Substance: ADALIMUMAB
     Indication: PRODUCT USED FOR UNKNOWN INDICATION
     Route: 058
  22. ACTEMRA [Suspect]
     Active Substance: TOCILIZUMAB
     Indication: PRODUCT USED FOR UNKNOWN INDICATION
     Route: 065
  23. TOCILIZUMAB. [Suspect]
     Active Substance: TOCILIZUMAB
     Indication: PRODUCT USED FOR UNKNOWN INDICATION
     Route: 065

REACTIONS (17)
  - Joint stiffness [Unknown]
  - Synovitis [Unknown]
  - Systemic lupus erythematosus [Unknown]
  - Bone erosion [Unknown]
  - Off label use [Unknown]
  - Burning sensation [Unknown]
  - Chronic kidney disease [Unknown]
  - Drug ineffective [Unknown]
  - Sepsis [Unknown]
  - C-reactive protein abnormal [Unknown]
  - Drug hypersensitivity [Unknown]
  - Contraindicated product administered [Unknown]
  - Diverticulitis [Unknown]
  - Treatment failure [Unknown]
  - Drug intolerance [Unknown]
  - Interstitial lung disease [Unknown]
  - Musculoskeletal stiffness [Unknown]
